FAERS Safety Report 7358120-8 (Version None)
Quarter: 2011Q1

REPORT INFORMATION
  Report Type: 
  Country: None (occurrence: None)
  Receive Date: 20110307
  Receipt Date: 20100517
  Transmission Date: 20110831
  Serious: No
  Sender: FDA-Public Use
  Company Number: AEUSA201000185

PATIENT
  Age: 69 Year
  Sex: Male
  Weight: 83.9154 kg

DRUGS (5)
  1. PROLASTIN [Suspect]
     Indication: ALPHA-1 ANTI-TRYPSIN DEFICIENCY
     Dosage: IV
     Route: 042
     Dates: start: 19950101, end: 20100301
  2. ADVAIR DISKUS 100/50 [Concomitant]
  3. SPIRIVA [Concomitant]
  4. ALBUTEROL [Concomitant]
  5. AMLODIPINE BESYLATE [Concomitant]

REACTIONS (3)
  - FEELING ABNORMAL [None]
  - FATIGUE [None]
  - ASTHENIA [None]
